FAERS Safety Report 4283533-0 (Version None)
Quarter: 2004Q1

REPORT INFORMATION
  Report Type: 
  Country: None (occurrence: None)
  Receive Date: 20040120
  Receipt Date: 20030624
  Transmission Date: 20041129
  Serious: Yes (Death, Other)
  Sender: FDA-Public Use
  Company Number: NSADSS2003022599

PATIENT
  Age: 37 Year
  Sex: Female
  Weight: 107.9561 kg

DRUGS (2)
  1. PARAGARD T380A (INTRAUTERINE CONTRACEPTIVE DEVICE) INTRAUTERINE DEVICE [Suspect]
     Indication: INTRA-UTERINE CONTRACEPTIVE DEVICE INSERTION
     Dosage: INTRAUTERINE
     Route: 015
     Dates: start: 20020516, end: 20030205
  2. PRENATAL VITAMINS (PRENATAL VITAMINS) [Concomitant]

REACTIONS (3)
  - ABORTION SPONTANEOUS [None]
  - PREGNANCY WITH CONTRACEPTIVE DEVICE [None]
  - UTERINE SPASM [None]
